FAERS Safety Report 19866940 (Version 1)
Quarter: 2021Q3

REPORT INFORMATION
  Report Type: Report from Study
  Country: US (occurrence: US)
  Receive Date: 20210922
  Receipt Date: 20210922
  Transmission Date: 20211014
  Serious: Yes (Hospitalization)
  Sender: FDA-Public Use
  Company Number: US-SA-2021SA309969

PATIENT
  Age: 80 Year
  Sex: Female

DRUGS (2)
  1. DUPILUMAB [Suspect]
     Active Substance: DUPILUMAB
     Dosage: 300 MG, QOW
     Route: 058
  2. DUPILUMAB [Suspect]
     Active Substance: DUPILUMAB
     Indication: ASTHMA
     Dosage: 600 MG, 1X
     Route: 058
     Dates: start: 20190121, end: 20190121

REACTIONS (5)
  - Road traffic accident [Unknown]
  - Joint dislocation [Unknown]
  - Product use issue [Unknown]
  - Skin abrasion [Unknown]
  - Wrist fracture [Unknown]

NARRATIVE: CASE EVENT DATE: 20190121
